FAERS Safety Report 4541289-8 (Version None)
Quarter: 2004Q4

REPORT INFORMATION
  Report Type: 
  Country: None (occurrence: None)
  Receive Date: 20041228
  Receipt Date: 20041222
  Transmission Date: 20050328
  Serious: Yes (Death)
  Sender: FDA-Public Use
  Company Number: 163-20785-04060032

PATIENT
  Age: 72 Year
  Sex: Male

DRUGS (2)
  1. THALOMID [Suspect]
     Indication: MYELOFIBROSIS
     Dosage: 200 MG DAILY ORAL
     Route: 048
     Dates: start: 20040504
  2. PREDNISONE [Concomitant]
     Indication: MYELOFIBROSIS
     Dates: start: 20040504

REACTIONS (1)
  - THROMBOSIS [None]
